FAERS Safety Report 4726826-2 (Version None)
Quarter: 2005Q3

REPORT INFORMATION
  Report Type: 
  Country: None (occurrence: None)
  Receive Date: 20050725
  Receipt Date: 20050414
  Transmission Date: 20060218
  Serious: No
  Sender: FDA-Public Use
  Company Number: USA050393661

PATIENT
  Age: 31 Year
  Sex: Female
  Weight: 102 kg

DRUGS (2)
  1. STRATTERA [Suspect]
     Indication: ATTENTION DEFICIT/HYPERACTIVITY DISORDER
     Dosage: 80 MG DAY
     Dates: start: 20041101
  2. RITALIN [Concomitant]

REACTIONS (4)
  - ABNORMAL DREAMS [None]
  - ALOPECIA [None]
  - ASTHENIA [None]
  - TONGUE DISCOLOURATION [None]
